FAERS Safety Report 20437588 (Version 3)
Quarter: 2022Q2

REPORT INFORMATION
  Report Type: Spontaneous
  Country: US (occurrence: None)
  Receive Date: 20220207
  Receipt Date: 20220531
  Transmission Date: 20220721
  Serious: Yes (Death, Other)
  Sender: FDA-Public Use
  Company Number: US-Ultragenyx Pharmaceutical Inc.-US-UGNX-22-00053

PATIENT
  Sex: Female

DRUGS (5)
  1. DOJOLVI [Suspect]
     Active Substance: TRIHEPTANOIN
     Indication: Carnitine-acylcarnitine translocase deficiency
     Dosage: 6 ML, SIX TIMES DAILY VIA G-TUBE
     Dates: start: 202011, end: 20220123
  2. DOJOLVI [Suspect]
     Active Substance: TRIHEPTANOIN
     Dosage: 6.66 ML, SIX TIMES DAILY VIA G-TUBE
     Dates: start: 20220112
  3. DOJOLVI [Suspect]
     Active Substance: TRIHEPTANOIN
  4. DOJOLVI [Suspect]
     Active Substance: TRIHEPTANOIN
     Dosage: VIA G-TUBE
     Dates: start: 202011
  5. LEVOCARNITINE [Concomitant]
     Active Substance: LEVOCARNITINE
     Indication: Product used for unknown indication

REACTIONS (3)
  - Hypertrophic cardiomyopathy [Fatal]
  - Rhabdomyolysis [Unknown]
  - Drug ineffective [Unknown]
